FAERS Safety Report 5740922-2 (Version None)
Quarter: 2008Q2

REPORT INFORMATION
  Report Type: 
  Country: None (occurrence: None)
  Receive Date: 20080516
  Receipt Date: 20080508
  Transmission Date: 20081010
  Serious: Yes (Hospitalization, Other)
  Sender: FDA-Public Use
  Company Number: US-PFIZER INC-2008024625

PATIENT
  Sex: Female
  Weight: 84.09 kg

DRUGS (15)
  1. CHANTIX [Suspect]
     Indication: SMOKING CESSATION THERAPY
     Route: 048
     Dates: start: 20071218, end: 20080422
  2. GRIS-PEG [Suspect]
     Indication: CHEILITIS
     Dates: start: 20080101, end: 20080101
  3. LOPRESSOR [Concomitant]
  4. TYLENOL W/ CODEINE NO. 3 [Concomitant]
  5. XANAX [Concomitant]
     Route: 048
  6. AMBIEN [Concomitant]
  7. POTASSIUM CHLORIDE [Concomitant]
  8. MAGNESIUM [Concomitant]
  9. ASCORBIC ACID [Concomitant]
  10. PROTONIX [Concomitant]
  11. ATARAX [Concomitant]
  12. FLEXERIL [Concomitant]
  13. LASIX [Concomitant]
  14. K-DUR [Concomitant]
  15. ACETYLSALICYLIC ACID SRT [Concomitant]

REACTIONS (3)
  - FUNGAL INFECTION [None]
  - SPEECH DISORDER [None]
  - VENTRICULAR TACHYCARDIA [None]
